FAERS Safety Report 6043555-6 (Version None)
Quarter: 2009Q1

REPORT INFORMATION
  Report Type: 
  Country: None (occurrence: None)
  Receive Date: 20090114
  Receipt Date: 20090114
  Transmission Date: 20090719
  Serious: Yes (Other)
  Sender: FDA-Public Use
  Company Number: None

PATIENT
  Sex: Male
  Weight: 74.8435 kg

DRUGS (10)
  1. LEXAPRO [Suspect]
     Indication: ANXIETY
     Dosage: DAILY
     Dates: start: 20070801, end: 20080201
  2. LEXAPRO [Suspect]
     Indication: DEPRESSION
     Dosage: DAILY
     Dates: start: 20070801, end: 20080201
  3. EFFEXOR XR [Suspect]
     Indication: ANXIETY
     Dosage: DAILY
     Dates: start: 20070801, end: 20080201
  4. EFFEXOR XR [Suspect]
     Indication: DEPRESSION
     Dosage: DAILY
     Dates: start: 20070801, end: 20080201
  5. LAMICTAL [Suspect]
     Indication: ANXIETY
     Dosage: DAILY
     Dates: start: 20070801, end: 20080201
  6. LAMICTAL [Suspect]
     Indication: DEPRESSION
     Dosage: DAILY
     Dates: start: 20070801, end: 20080201
  7. CELEXA [Suspect]
     Indication: ANXIETY
     Dosage: DAILY
     Dates: start: 20080901, end: 20081231
  8. CELEXA [Suspect]
     Indication: DEPRESSION
     Dosage: DAILY
     Dates: start: 20080901, end: 20081231
  9. REMERON [Suspect]
     Indication: ANXIETY
     Dosage: DAILY
     Dates: start: 20080901, end: 20081231
  10. REMERON [Suspect]
     Indication: DEPRESSION
     Dosage: DAILY
     Dates: start: 20080901, end: 20081231

REACTIONS (10)
  - AGITATION [None]
  - BURNING SENSATION [None]
  - FEELING ABNORMAL [None]
  - FEELING HOT [None]
  - MENTAL DISORDER [None]
  - PAIN [None]
  - PARAESTHESIA [None]
  - PRURITUS [None]
  - SENSORY DISTURBANCE [None]
  - SHOCK [None]
